FAERS Safety Report 7927033-2 (Version None)
Quarter: 2011Q4

REPORT INFORMATION
  Report Type: 
  Country: None (occurrence: None)
  Receive Date: 20111118
  Receipt Date: 20111111
  Transmission Date: 20120403
  Serious: Yes (Congenital Anomaly, Other)
  Sender: FDA-Public Use
  Company Number: GB-BRISTOL-MYERS SQUIBB COMPANY-16089328

PATIENT
  Age: 1 Day
  Sex: Male

DRUGS (4)
  1. ATRIPLA [Suspect]
     Dosage: ALSO TAKEN FROM SEP-2011
     Route: 064
     Dates: start: 20100301
  2. ATAZANAVIR [Suspect]
     Route: 064
     Dates: start: 20100801, end: 20110901
  3. TRUVADA [Suspect]
     Dosage: 1DF=TAB/CAPS.
     Route: 064
     Dates: start: 20100801, end: 20110901
  4. RITONAVIR [Suspect]
     Route: 064
     Dates: start: 20100801, end: 20110901

REACTIONS (1)
  - CONGENITAL TERATOMA [None]
